FAERS Safety Report 23358300 (Version 2)
Quarter: 2024Q1

REPORT INFORMATION
  Report Type: Spontaneous
  Country: US (occurrence: US)
  Receive Date: 20240102
  Receipt Date: 20240123
  Transmission Date: 20240409
  Serious: No
  Sender: FDA-Public Use
  Company Number: US-ALKERMES INC.-ALK-2023-004729

PATIENT
  Sex: Female

DRUGS (4)
  1. VIVITROL [Suspect]
     Active Substance: NALTREXONE
     Indication: Substance dependence
     Dosage: 380 MILLIGRAM, QMO
     Route: 030
     Dates: start: 20230803
  2. WELLBUTRIN SR [Concomitant]
     Active Substance: BUPROPION HYDROCHLORIDE
     Indication: Anxiety
     Dosage: 150 MILLIGRAM, BID
     Route: 048
     Dates: start: 20211016
  3. SERTRALINE [Concomitant]
     Active Substance: SERTRALINE HYDROCHLORIDE
     Indication: Anxiety
     Dosage: 100 MILLIGRAM, QD
     Route: 048
     Dates: start: 20211213
  4. BUSPIRONE [Concomitant]
     Active Substance: BUSPIRONE HYDROCHLORIDE
     Indication: Anxiety
     Dosage: 10 MILLIGRAM, TID
     Route: 048
     Dates: start: 20211213

REACTIONS (4)
  - Off label use [Not Recovered/Not Resolved]
  - Product administration error [Unknown]
  - Injection site mass [Recovering/Resolving]
  - Injection site rash [Recovering/Resolving]
